FAERS Safety Report 7200963-5 (Version None)
Quarter: 2010Q4

REPORT INFORMATION
  Report Type: 
  Country: None (occurrence: None)
  Receive Date: 20101228
  Receipt Date: 20101216
  Transmission Date: 20110411
  Serious: Yes (Hospitalization, Other)
  Sender: FDA-Public Use
  Company Number: CA-GENENTECH-303566

PATIENT
  Sex: Female
  Weight: 63.9 kg

DRUGS (1)
  1. XOLAIR [Suspect]
     Indication: ASTHMA
     Dosage: 300 MG, 1/MONTH
     Route: 058
     Dates: start: 20060308

REACTIONS (7)
  - ASTHMA [None]
  - ASTHMATIC CRISIS [None]
  - DYSPNOEA [None]
  - HYPERSENSITIVITY [None]
  - NASAL CONGESTION [None]
  - SNEEZING [None]
  - WHEEZING [None]
